FAERS Safety Report 15516279 (Version 1)
Quarter: 2018Q4

REPORT INFORMATION
  Report Type: Spontaneous
  Country: NL (occurrence: NL)
  Receive Date: 20181017
  Receipt Date: 20181017
  Transmission Date: 20190205
  Serious: Yes (Hospitalization)
  Sender: FDA-Public Use
  Company Number: NL-ACCORD-073408

PATIENT

DRUGS (6)
  1. LEUCOVORIN. [Suspect]
     Active Substance: LEUCOVORIN
     Indication: COLORECTAL CANCER
     Dosage: DOSE PRIOR TO ADVERSE EVENT 13-NOV-2017
     Route: 065
     Dates: start: 20170524
  2. PEGYLATED LIPOSOMAL IRINOTECAN [Suspect]
     Active Substance: IRINOTECAN HYDROCHLORIDE
     Indication: COLORECTAL CANCER
     Dosage: DOSE PRIOR TO ADVERSE EVENT 13-NOV-2017
     Route: 065
     Dates: start: 20170524
  3. FLUOROURACIL. [Suspect]
     Active Substance: FLUOROURACIL
     Indication: COLORECTAL CANCER
     Dosage: DOSE PRIOR TO ADVERSE EVENT 13-NOV-2017
     Route: 065
     Dates: start: 20170524
  4. OXALIPLATIN. [Suspect]
     Active Substance: OXALIPLATIN
     Indication: COLORECTAL CANCER
     Dosage: DOSE PRIOR TO ADVERSE EVENT 13-NOV-2017
     Route: 065
     Dates: start: 20170524
  5. IRINOTECAN [Suspect]
     Active Substance: IRINOTECAN
     Indication: COLORECTAL CANCER
     Dosage: DOSE PRIOR TO ADVERSE EVENT 13-NOV-2017
     Route: 065
     Dates: start: 20170524
  6. AVASTIN [Suspect]
     Active Substance: BEVACIZUMAB
     Indication: COLORECTAL CANCER
     Dosage: DOSE PRIOR TO ADVERSE EVENT 13-NOV-2017
     Route: 065
     Dates: start: 20170524

REACTIONS (1)
  - Diplopia [Recovering/Resolving]

NARRATIVE: CASE EVENT DATE: 20171121
